FAERS Safety Report 23235856 (Version 2)
Quarter: 2023Q4

REPORT INFORMATION
  Report Type: Report from Study
  Country: EG (occurrence: EG)
  Receive Date: 20231128
  Receipt Date: 20231202
  Transmission Date: 20240110
  Serious: Yes (Life-Threatening, Hospitalization)
  Sender: FDA-Public Use
  Company Number: EG-002147023-NVSC2023EG249760

PATIENT
  Sex: Female

DRUGS (5)
  1. ENTRESTO [Suspect]
     Active Substance: SACUBITRIL\VALSARTAN
     Indication: Cardiac failure
     Dosage: 1 DOSAGE FORM, QD (50MG, STARTED 5 YEARS AGO)
     Route: 048
  2. ASPIRIN [Concomitant]
     Active Substance: ASPIRIN
     Indication: Hyperlipidaemia
     Dosage: 1 DOSAGE FORM, QD (1-3 TIMES DAILY, STARTED 5 YEARS AGO)
     Route: 048
  3. PLAVIX [Concomitant]
     Active Substance: CLOPIDOGREL BISULFATE
     Indication: Cardiac disorder
     Dosage: 1 DOSAGE FORM, QD (STARTED 5 YEARS AGO)
     Route: 048
  4. BISOPROLOL FUMARATE [Concomitant]
     Active Substance: BISOPROLOL FUMARATE
     Indication: Hypertension
     Dosage: UNK, TID
     Route: 065
  5. RAMIPRIL [Concomitant]
     Active Substance: RAMIPRIL
     Indication: Product used for unknown indication
     Dosage: UNK
     Route: 065

REACTIONS (4)
  - Implant site inflammation [Recovered/Resolved]
  - Implant site discharge [Recovered/Resolved]
  - Lead dislodgement [Unknown]
  - Off label use [Unknown]

NARRATIVE: CASE EVENT DATE: 20190101
